FAERS Safety Report 7941310-0 (Version None)
Quarter: 2011Q4

REPORT INFORMATION
  Report Type: 
  Country: None (occurrence: None)
  Receive Date: 20111122
  Receipt Date: 20111116
  Transmission Date: 20120403
  Serious: Yes (Disabling, Other)
  Sender: FDA-Public Use
  Company Number: AUR-APL-2011-05858

PATIENT
  Age: 49 Year
  Sex: Female
  Weight: 102 kg

DRUGS (6)
  1. LATANOPROST [Concomitant]
  2. CELEBREX [Concomitant]
     Indication: ARTHRALGIA
     Dosage: 200 MG (100 MG,2 IN 1 D),ORAL
     Route: 048
     Dates: start: 20110914
  3. CELEBREX [Concomitant]
     Indication: ARTHRITIS
     Dosage: 200 MG (100 MG,2 IN 1 D),ORAL
     Route: 048
     Dates: start: 20110914
  4. ALPRAZOLAM [Suspect]
     Indication: ANXIETY
     Dosage: (2 MG,AS REQUIRED)
  5. METOPROLOL TARTRATE [Suspect]
     Indication: HYPERTENSION
     Dates: start: 20110325, end: 20110914
  6. MICARDIS HCT [Suspect]
     Indication: HYPERTENSION
     Dosage: 80MG/12.5 MG (1 D)
     Dates: start: 20110914

REACTIONS (12)
  - VISUAL IMPAIRMENT [None]
  - DRUG INEFFECTIVE [None]
  - ACTIVITIES OF DAILY LIVING IMPAIRED [None]
  - HYPERHIDROSIS [None]
  - DRY MOUTH [None]
  - PAIN [None]
  - ARTHRITIS [None]
  - OEDEMA PERIPHERAL [None]
  - DEHYDRATION [None]
  - MOBILITY DECREASED [None]
  - BEDRIDDEN [None]
  - JOINT LOCK [None]
